FAERS Safety Report 11173883 (Version 1)
Quarter: 2015Q2

REPORT INFORMATION
  Report Type: Spontaneous
  Country: JP (occurrence: None)
  Receive Date: 20150605
  Receipt Date: 20150605
  Transmission Date: 20150821
  Serious: Yes (Death, Other)
  Sender: FDA-Public Use
  Company Number: 2015SGN00870

PATIENT
  Sex: Female
  Weight: 34.4 kg

DRUGS (1)
  1. ADCETRIS [Suspect]
     Active Substance: BRENTUXIMAB VEDOTIN
     Indication: HODGKIN^S DISEASE
     Dosage: Q21D
     Route: 041
     Dates: start: 20140711, end: 20140919

REACTIONS (2)
  - Interstitial lung disease [None]
  - Meningitis aseptic [None]
